FAERS Safety Report 13065603 (Version 3)
Quarter: 2017Q1

REPORT INFORMATION
  Report Type: Spontaneous
  Country: JP (occurrence: JP)
  Receive Date: 20161227
  Receipt Date: 20170215
  Transmission Date: 20170428
  Serious: Yes (Life-Threatening, Other)
  Sender: FDA-Public Use
  Company Number: JP-PFIZER INC-2016594148

PATIENT
  Age: 88 Year
  Sex: Female

DRUGS (3)
  1. LYRICA [Suspect]
     Active Substance: PREGABALIN
     Indication: PARALYSIS
  2. CELECOX [Suspect]
     Active Substance: CELECOXIB
     Dosage: 200 MG, PER DAY
     Route: 048
     Dates: start: 20150312, end: 20161117
  3. LYRICA [Suspect]
     Active Substance: PREGABALIN
     Indication: SPONDYLOLISTHESIS
     Dosage: 75 MG, 1X/DAY
     Route: 048
     Dates: start: 20161123, end: 20161128

REACTIONS (3)
  - Renal failure [Not Recovered/Not Resolved]
  - Restlessness [Recovering/Resolving]
  - Asthenia [Recovering/Resolving]

NARRATIVE: CASE EVENT DATE: 20161117
